FAERS Safety Report 19524810 (Version 1)
Quarter: 2021Q3

REPORT INFORMATION
  Report Type: Spontaneous
  Country: US (occurrence: US)
  Receive Date: 20210712
  Receipt Date: 20210712
  Transmission Date: 20211014
  Serious: Yes (Other)
  Sender: FDA-Public Use
  Company Number: None

PATIENT
  Age: 10 Year
  Sex: Male
  Weight: 99 kg

DRUGS (1)
  1. EQUATE MENS BOLD SCENT 2 IN 1 DANDRUFF SH AND COND ANTI?DANDRUFF [Suspect]
     Active Substance: PYRITHIONE ZINC
     Indication: DANDRUFF
     Dosage: ?          QUANTITY:31.4 OUNCE(S);OTHER FREQUENCY:AS NEEDED;?
     Route: 061
     Dates: start: 20210710, end: 20210710

REACTIONS (3)
  - Pruritus [None]
  - Rash [None]
  - Skin burning sensation [None]

NARRATIVE: CASE EVENT DATE: 20210710
